FAERS Safety Report 4860270-2 (Version None)
Quarter: 2005Q4

REPORT INFORMATION
  Report Type: 
  Country: None (occurrence: None)
  Receive Date: 20051215
  Receipt Date: 20051208
  Transmission Date: 20060501
  Serious: Yes (Hospitalization)
  Sender: FDA-Public Use
  Company Number: 2005166115

PATIENT
  Age: 30 Year
  Sex: Female
  Weight: 61.2356 kg

DRUGS (2)
  1. SUDAFED SINUS (PARACETAMOL, PSEUDOEPHEDRINE) [Suspect]
     Indication: INFLUENZA
     Dosage: 1 TABLET TWICE PER DAY, ORAL
     Route: 048
     Dates: start: 20050101, end: 20050201
  2. CONTRACEPTIVE, UNSPECIFIED (CONTRACEPTIVE, UNSPECIFIED) [Concomitant]

REACTIONS (3)
  - DRUG HYPERSENSITIVITY [None]
  - INFLUENZA [None]
  - SYNCOPE [None]
